FAERS Safety Report 18255805 (Version 1)
Quarter: 2020Q3

REPORT INFORMATION
  Report Type: Other
  Country: US (occurrence: US)
  Receive Date: 20200910
  Receipt Date: 20200910
  Transmission Date: 20201103
  Serious: No
  Sender: FDA-Public Use
  Company Number: US-LEADIANT BIOSCIENCES INC-2019STPI000428

PATIENT

DRUGS (11)
  1. GLYBURIDE. [Concomitant]
     Active Substance: GLYBURIDE
  2. LANTUS [Concomitant]
     Active Substance: INSULIN GLARGINE
  3. LISINOPRIL/HCTZ [Concomitant]
     Active Substance: HYDROCHLOROTHIAZIDE\LISINOPRIL
  4. VITAMIN C [Concomitant]
     Active Substance: ASCORBIC ACID
  5. VITAMIN B [Concomitant]
     Active Substance: VITAMIN B
  6. MATULANE [Suspect]
     Active Substance: PROCARBAZINE HYDROCHLORIDE
     Indication: PLASMA CELL MYELOMA
     Dosage: 100 MILLIGRAM, QD ON DAYS 8?21 OF A 56 DAY CYCLE
     Route: 048
     Dates: start: 20190321
  7. HUMALOG [Concomitant]
     Active Substance: INSULIN LISPRO
  8. OMEPRAZOLE. [Concomitant]
     Active Substance: OMEPRAZOLE
  9. FENOFIBRIC ACID. [Concomitant]
     Active Substance: FENOFIBRIC ACID
  10. LEVETIRACETAM. [Concomitant]
     Active Substance: LEVETIRACETAM
  11. VITAMIN D NOS [Concomitant]
     Active Substance: VITAMIN D NOS

REACTIONS (1)
  - Constipation [Not Recovered/Not Resolved]

NARRATIVE: CASE EVENT DATE: 201904
